FAERS Safety Report 5763757-3 (Version None)
Quarter: 2008Q2

REPORT INFORMATION
  Report Type: 
  Country: None (occurrence: None)
  Receive Date: 20080606
  Receipt Date: 20080606
  Transmission Date: 20081010
  Serious: Yes (Hospitalization)
  Sender: FDA-Public Use
  Company Number: None

PATIENT

DRUGS (1)
  1. VALPROIC ACID [Suspect]
     Indication: DELIRIUM
     Dosage: 250MG PO 2XD
     Route: 048
     Dates: start: 20080506, end: 20080512

REACTIONS (1)
  - STEVENS-JOHNSON SYNDROME [None]
